FAERS Safety Report 24074742 (Version 1)
Quarter: 2024Q3

REPORT INFORMATION
  Report Type: Spontaneous
  Country: CZ (occurrence: CZ)
  Receive Date: 20240710
  Receipt Date: 20240710
  Transmission Date: 20241016
  Serious: No
  Sender: PIERRE FABRE MEDICAMENT
  Company Number: CZ-PFM-2023-07102

PATIENT
  Sex: Female

DRUGS (2)
  1. PROPRANOLOL HYDROCHLORIDE [Suspect]
     Active Substance: PROPRANOLOL HYDROCHLORIDE
     Indication: Haemangioma
     Dosage: 1 MG/KG/DAY
     Route: 048
     Dates: start: 20220217
  2. PROPRANOLOL HYDROCHLORIDE [Suspect]
     Active Substance: PROPRANOLOL HYDROCHLORIDE
     Dosage: 0.3 MG/KG/DAY
     Route: 048

REACTIONS (3)
  - Apathy [Recovered/Resolved]
  - Restlessness [Recovered/Resolved]
  - Nightmare [Recovered/Resolved]
